FAERS Safety Report 19811778 (Version 1)
Quarter: 2021Q3

REPORT INFORMATION
  Report Type: Spontaneous
  Country: US (occurrence: US)
  Receive Date: 20210909
  Receipt Date: 20210909
  Transmission Date: 20211014
  Serious: No
  Sender: FDA-Public Use
  Company Number: US-PFIZER INC-2020459213

PATIENT
  Age: 56 Year
  Sex: Male

DRUGS (6)
  1. SULFASALAZINE. [Concomitant]
     Active Substance: SULFASALAZINE
     Dosage: 500 MG
  2. XELJANZ XR [Suspect]
     Active Substance: TOFACITINIB CITRATE
     Indication: RHEUMATOID ARTHRITIS
     Dosage: 11 MG, DAILY
     Route: 048
     Dates: start: 201701
  3. HYDROCODONE/ACETAMINOPHEN [Concomitant]
     Active Substance: ACETAMINOPHEN\HYDROCODONE
     Dosage: UNK
  4. LEFLUNOMIDE. [Concomitant]
     Active Substance: LEFLUNOMIDE
     Dosage: 10 MG
  5. XELJANZ XR [Suspect]
     Active Substance: TOFACITINIB CITRATE
     Indication: CARDIAC DISORDER
  6. MELOXICAM. [Concomitant]
     Active Substance: MELOXICAM
     Dosage: 15 MG

REACTIONS (1)
  - Pain in extremity [Unknown]
